FAERS Safety Report 6506873-0 (Version None)
Quarter: 2009Q4

REPORT INFORMATION
  Report Type: 
  Country: None (occurrence: None)
  Receive Date: 20091221
  Receipt Date: 20091216
  Transmission Date: 20100525
  Serious: Yes (Hospitalization)
  Sender: FDA-Public Use
  Company Number: DE-SANOFI-AVENTIS-2009SA008272

PATIENT
  Age: 65 Year
  Sex: Female

DRUGS (9)
  1. LANTUS [Suspect]
     Route: 058
     Dates: start: 20050803
  2. OPTIPEN [Suspect]
  3. BLINDED THERAPY [Suspect]
     Dates: start: 20050823, end: 20080114
  4. SIMVASTATIN [Concomitant]
     Dosage: 20 (NOS)
     Dates: start: 20071201
  5. LEVOTHYROXINE SODIUM [Concomitant]
     Indication: THYROID DISORDER
     Dosage: 125 (NOS)
     Dates: start: 20090401
  6. METOPROLOL TARTRATE [Concomitant]
     Indication: HYPERTENSION
     Dosage: 50(NOS)
     Dates: start: 20080401
  7. RAMIPRIL [Concomitant]
     Indication: HYPERTONIA
     Dosage: 2.5 (NOS)
     Dates: start: 20070401
  8. ACETYLSALICYLIC ACID [Concomitant]
     Indication: PROPHYLAXIS
  9. CHOLSPASMIN [Concomitant]
     Dosage: 400 (NOS)
     Dates: start: 20020701

REACTIONS (1)
  - SKIN CANCER [None]
